FAERS Safety Report 9758922 (Version 1)
Quarter: 2013Q4

REPORT INFORMATION
  Report Type: Spontaneous
  Country: US (occurrence: None)
  Receive Date: 20131216
  Receipt Date: 20131216
  Transmission Date: 20140711
  Serious: Yes (Hospitalization)
  Sender: FDA-Public Use
  Company Number: 1206USA04612

PATIENT
  Age: 79 Year
  Sex: Female

DRUGS (3)
  1. COSOPT [Suspect]
     Indication: GLAUCOMA
     Dosage: OPHTHALMIC
  2. COSOPT [Suspect]
     Indication: GLAUCOMA
     Dosage: , OPHTHALMIC
  3. LUMIGAN [Suspect]
     Indication: GLAUCOMA
     Dosage: 2 UNK, HS, OPHTHALMIC?RIGHT EYE, OPHTHALMIC

REACTIONS (8)
  - Heart rate irregular [None]
  - Chest discomfort [None]
  - Spinal column stenosis [None]
  - Musculoskeletal disorder [None]
  - Drug ineffective [None]
  - Cough [None]
  - Feeling cold [None]
  - Chest pain [None]
